FAERS Safety Report 19980227 (Version 2)
Quarter: 2023Q2

REPORT INFORMATION
  Report Type: Spontaneous
  Country: JP (occurrence: JP)
  Receive Date: 20211021
  Receipt Date: 20230417
  Transmission Date: 20230721
  Serious: Yes (Hospitalization)
  Sender: FDA-Public Use
  Company Number: JP-ABBVIE-21K-087-4125980-00

PATIENT
  Age: 80 Year
  Sex: Female

DRUGS (4)
  1. VENCLEXTA [Suspect]
     Active Substance: VENETOCLAX
     Indication: Product used for unknown indication
     Dosage: LAST ADMIN DATE: 2021
     Route: 048
     Dates: start: 202108
  2. VENCLEXTA [Suspect]
     Active Substance: VENETOCLAX
     Indication: Product used for unknown indication
     Route: 048
     Dates: start: 2021, end: 2021
  3. HYDROXYUREA [Concomitant]
     Active Substance: HYDROXYUREA
     Indication: Product used for unknown indication
     Dosage: 2000 MG
  4. AZACITIDINE [Concomitant]
     Active Substance: AZACITIDINE
     Indication: Product used for unknown indication
     Dosage: 75 MG/M2

REACTIONS (5)
  - Myelosuppression [Unknown]
  - Pyrexia [Unknown]
  - Neutrophil count decreased [Unknown]
  - Infection [Unknown]
  - Performance status decreased [Not Recovered/Not Resolved]

NARRATIVE: CASE EVENT DATE: 20210101
